FAERS Safety Report 13834509 (Version 4)
Quarter: 2018Q1

REPORT INFORMATION
  Report Type: Spontaneous
  Country: IT (occurrence: IT)
  Receive Date: 20170804
  Receipt Date: 20180202
  Transmission Date: 20180508
  Serious: Yes (Other)
  Sender: FDA-Public Use
  Company Number: PHHY2017IT112412

PATIENT
  Age: 52 Year
  Sex: Female

DRUGS (3)
  1. FULVESTRANT. [Suspect]
     Active Substance: FULVESTRANT
     Indication: BREAST CANCER
     Dosage: 500 MG, QD
     Route: 030
     Dates: start: 201511
  2. TAMOXIFEN [Suspect]
     Active Substance: TAMOXIFEN
     Indication: BREAST CANCER
     Dosage: UNK
     Route: 048
     Dates: start: 201202, end: 201207
  3. ANASTROZOLE. [Suspect]
     Active Substance: ANASTROZOLE
     Indication: BREAST CANCER
     Dosage: 1 MG, QD
     Route: 048

REACTIONS (4)
  - Drug intolerance [Unknown]
  - Off label use [Unknown]
  - Lymphadenopathy [Unknown]
  - Neoplasm recurrence [Unknown]

NARRATIVE: CASE EVENT DATE: 2015
